FAERS Safety Report 4676944-2 (Version None)
Quarter: 2005Q2

REPORT INFORMATION
  Report Type: 
  Country: None (occurrence: None)
  Receive Date: 20050526
  Receipt Date: 20050520
  Transmission Date: 20051028
  Serious: Yes (Life-Threatening, Hospitalization)
  Sender: FDA-Public Use
  Company Number: TPA2003A00604

PATIENT
  Age: 81 Year
  Sex: Male

DRUGS (7)
  1. GLIPIZIDE (GLIPIZIDE) (TABLETS) [Suspect]
     Indication: DIABETES MELLITUS NON-INSULIN-DEPENDENT
     Dosage: PER ORAL
     Route: 048
  2. LOSARTAN (LOSARTAN) [Concomitant]
  3. METOPROLOL TARTRATE [Concomitant]
  4. FUROSEMIDE [Concomitant]
  5. HYDRALAZINE HCL [Concomitant]
  6. GLIPIZIDE [Concomitant]
  7. SIMVASTATIN [Concomitant]

REACTIONS (1)
  - GASTROINTESTINAL HAEMORRHAGE [None]
